FAERS Safety Report 5198901-2 (Version None)
Quarter: 2006Q4

REPORT INFORMATION
  Report Type: 
  Country: None (occurrence: None)
  Receive Date: 20060922
  Receipt Date: 20050823
  Transmission Date: 20070319
  Serious: Yes (Other)
  Sender: FDA-Public Use
  Company Number: 2005119841

PATIENT
  Sex: Female
  Weight: 56.6996 kg

DRUGS (2)
  1. NAVANE [Suspect]
     Indication: ILL-DEFINED DISORDER
  2. RISPERDAL [Suspect]
     Indication: ILL-DEFINED DISORDER

REACTIONS (5)
  - ADVERSE EVENT [None]
  - HEADACHE [None]
  - MUSCLE CONTRACTIONS INVOLUNTARY [None]
  - TACHYCARDIA [None]
  - WEIGHT INCREASED [None]
